FAERS Safety Report 8939869 (Version 2)
Quarter: 2014Q2

REPORT INFORMATION
  Report Type: Spontaneous
  Country: US (occurrence: US)
  Receive Date: 20121203
  Receipt Date: 20131018
  Transmission Date: 20141212
  Serious: Yes (Other)
  Sender: FDA-Public Use
  Company Number: US-PFIZER INC-2012302066

PATIENT
  Age: 56 Year
  Sex: Female
  Weight: 90.7 kg

DRUGS (11)
  1. NICOTROL NASAL SPRAY [Suspect]
     Indication: SMOKING CESSATION THERAPY
     Dosage: UNK
     Route: 045
     Dates: start: 20121116
  2. MORPHINE SULFATE [Suspect]
     Indication: INTERVERTEBRAL DISC DEGENERATION
     Dosage: 45 MG, 3X/DAY
  3. OXYCODONE HYDROCHLORIDE [Suspect]
     Indication: PAIN
     Dosage: 15 MG, UNK
  4. LOSARTAN [Concomitant]
     Indication: HYPERTENSION
     Dosage: UNK, 1X/DAY
  5. ALBUTEROL [Concomitant]
     Indication: ASTHMA
     Dosage: UNK, 2X/MONTH
  6. MORPHINE [Concomitant]
     Dosage: 45 MG, 3X/DAY
  7. OXYCODONE [Concomitant]
     Dosage: 15 MG, UNK
  8. FLAVOXATE [Concomitant]
     Dosage: UNK, 3X/DAY
  9. CITALOPRAM [Concomitant]
     Dosage: UNK, 1X/DAY
  10. XANAX [Concomitant]
     Dosage: 0.5 MG, 2X/DAY
  11. FLEXERIL [Concomitant]
     Indication: MUSCLE SPASMS
     Dosage: 5 MG, 3X/DAY

REACTIONS (15)
  - Intervertebral disc degeneration [Unknown]
  - Fibromyalgia [Unknown]
  - Neck pain [Not Recovered/Not Resolved]
  - Nasal congestion [Not Recovered/Not Resolved]
  - Tinnitus [Not Recovered/Not Resolved]
  - Ear pain [Not Recovered/Not Resolved]
  - Bruxism [Unknown]
  - Loose tooth [Unknown]
  - Headache [Unknown]
  - Hot flush [Unknown]
  - Irritability [Unknown]
  - Rhinorrhoea [Unknown]
  - Sneezing [Unknown]
  - Dizziness [Unknown]
  - Pain [Unknown]
